FAERS Safety Report 13890828 (Version 1)
Quarter: 2017Q3

REPORT INFORMATION
  Report Type: Spontaneous
  Country: JP (occurrence: JP)
  Receive Date: 20170822
  Receipt Date: 20170822
  Transmission Date: 20171127
  Serious: Yes (Other)
  Sender: FDA-Public Use
  Company Number: JP-PFIZER INC-2017354714

PATIENT
  Age: 79 Year
  Sex: Male

DRUGS (2)
  1. UFT [Suspect]
     Active Substance: TEGAFUR\URACIL
     Dosage: UNK
  2. LEUCOVORIN. [Suspect]
     Active Substance: LEUCOVORIN
     Dosage: UNK

REACTIONS (1)
  - Pancytopenia [Unknown]
